FAERS Safety Report 5458458-5 (Version None)
Quarter: 2007Q3

REPORT INFORMATION
  Report Type: 
  Country: None (occurrence: None)
  Receive Date: 20070919
  Receipt Date: 20070326
  Transmission Date: 20080115
  Serious: No
  Sender: FDA-Public Use
  Company Number: US-ASTRAZENECA-2007UW06214

PATIENT
  Sex: Female

DRUGS (6)
  1. SEROQUEL [Suspect]
     Indication: INSOMNIA
     Route: 048
     Dates: start: 20061001
  2. SEROQUEL [Suspect]
     Route: 048
     Dates: start: 20061101
  3. SEROQUEL [Suspect]
     Route: 048
     Dates: end: 20070301
  4. SEROQUEL [Suspect]
     Route: 048
  5. LAMICTAL [Concomitant]
  6. XANAX [Concomitant]

REACTIONS (16)
  - DIZZINESS [None]
  - DRUG WITHDRAWAL SYNDROME [None]
  - FEELING JITTERY [None]
  - GASTROINTESTINAL PAIN [None]
  - HEAD DISCOMFORT [None]
  - HEADACHE [None]
  - INSOMNIA [None]
  - MENTAL IMPAIRMENT [None]
  - NERVOUS SYSTEM DISORDER [None]
  - NIGHT SWEATS [None]
  - NIGHTMARE [None]
  - RESTLESSNESS [None]
  - STOMACH DISCOMFORT [None]
  - THINKING ABNORMAL [None]
  - TREMOR [None]
  - VOMITING [None]
